FAERS Safety Report 19517580 (Version 1)
Quarter: 2021Q3

REPORT INFORMATION
  Report Type: Report from Study
  Country: IT (occurrence: IT)
  Receive Date: 20210712
  Receipt Date: 20210712
  Transmission Date: 20211014
  Serious: Yes (Hospitalization)
  Sender: FDA-Public Use
  Company Number: IT-TEVA-2021-IT-1931664

PATIENT
  Age: 51 Year
  Sex: Male

DRUGS (9)
  1. LIBRIUM [Suspect]
     Active Substance: CHLORDIAZEPOXIDE HYDROCHLORIDE
     Indication: DRUG ABUSE
     Dosage: 70 MG
     Route: 065
     Dates: start: 20210602, end: 20210602
  2. METHADONE HYDROCHLORIDE. [Suspect]
     Active Substance: METHADONE HYDROCHLORIDE
     Indication: DRUG ABUSE
     Dosage: 1200 MG
     Route: 065
     Dates: start: 20210602, end: 20210602
  3. TIXTELLER [Suspect]
     Active Substance: RIFAXIMIN
     Indication: DRUG ABUSE
     Dosage: 7700 MG
     Route: 065
     Dates: start: 20210602, end: 20210602
  4. NEURONTIN [Concomitant]
     Active Substance: GABAPENTIN
     Dosage: 300 MG
  5. QUETIAPINE. [Suspect]
     Active Substance: QUETIAPINE
     Indication: DRUG ABUSE
     Dosage: 150 MG
     Route: 065
     Dates: start: 20210602, end: 20210602
  6. CITALOPRAM [Concomitant]
     Active Substance: CITALOPRAM HYDROBROMIDE
     Dosage: 10 MG
  7. DEPAKIN [Suspect]
     Active Substance: VALPROATE SODIUM
     Indication: DRUG ABUSE
     Dosage: 23 DF
     Route: 065
     Dates: start: 20210602, end: 20210602
  8. STILNOX [Suspect]
     Active Substance: ZOLPIDEM TARTRATE
     Indication: DRUG ABUSE
     Dosage: 150 MG
     Route: 065
     Dates: start: 20210602, end: 20210602
  9. TRITTICO [Concomitant]
     Active Substance: TRAZODONE HYDROCHLORIDE
     Dosage: 50 MG

REACTIONS (1)
  - Sopor [Not Recovered/Not Resolved]

NARRATIVE: CASE EVENT DATE: 20210602
